FAERS Safety Report 7488287-2 (Version None)
Quarter: 2011Q2

REPORT INFORMATION
  Report Type: 
  Country: None (occurrence: None)
  Receive Date: 20110511
  Receipt Date: 20110427
  Transmission Date: 20111010
  Serious: Yes (Hospitalization)
  Sender: FDA-Public Use
  Company Number: CLO-11-01

PATIENT
  Age: 15 Year
  Sex: Female

DRUGS (4)
  1. CLONIDINE [Suspect]
  2. QUETIAPINE [Concomitant]
  3. TRAZODONE HCL [Concomitant]
  4. RISPERIDONE [Concomitant]

REACTIONS (10)
  - LETHARGY [None]
  - ELECTROCARDIOGRAM QT PROLONGED [None]
  - DELIRIUM [None]
  - UNRESPONSIVE TO STIMULI [None]
  - HYPOTENSION [None]
  - SELF-MEDICATION [None]
  - MULTIPLE DRUG OVERDOSE [None]
  - TOXICITY TO VARIOUS AGENTS [None]
  - SOMNOLENCE [None]
  - TACHYCARDIA [None]
